FAERS Safety Report 11419877 (Version 1)
Quarter: 2015Q3

REPORT INFORMATION
  Report Type: Spontaneous
  Country: US (occurrence: None)
  Receive Date: 20150825
  Receipt Date: 20150825
  Transmission Date: 20151125
  Serious: Yes (Other)
  Sender: FDA-Public Use
  Company Number: None

PATIENT
  Age: 62 Year
  Sex: Female
  Weight: 95.26 kg

DRUGS (22)
  1. CLOBETASOL PROPIONATE. [Concomitant]
     Active Substance: CLOBETASOL PROPIONATE
  2. OXYCODONE [Concomitant]
     Active Substance: OXYCODONE
  3. DIAZEPAM. [Concomitant]
     Active Substance: DIAZEPAM
  4. METOPROLOL TARTRATE. [Concomitant]
     Active Substance: METOPROLOL TARTRATE
  5. OMEPROZOLE [Suspect]
     Active Substance: OMEPRAZOLE
     Indication: ABDOMINAL PAIN LOWER
     Route: 048
  6. LISINOPRIL. [Concomitant]
     Active Substance: LISINOPRIL
  7. HUMALOG R [Concomitant]
  8. SIMVASTATIN. [Concomitant]
     Active Substance: SIMVASTATIN
  9. AMLODIPINE BESYLATE. [Concomitant]
     Active Substance: AMLODIPINE BESYLATE
  10. TRIPLE FLEX [Concomitant]
  11. VITAMIN B12 [Concomitant]
     Active Substance: CYANOCOBALAMIN
  12. ONE-A-DAY VITAMIN [Concomitant]
  13. ROGAINE SUPER B COMPLEX [Concomitant]
  14. LANTUS [Concomitant]
     Active Substance: INSULIN GLARGINE
  15. BUTALB-ASA-CAFF [Concomitant]
  16. ROGAINE [Concomitant]
     Active Substance: MINOXIDIL
  17. D-3 [Concomitant]
     Active Substance: CHOLECALCIFEROL
  18. HYDROMORPHONE [Suspect]
     Active Substance: HYDROMORPHONE
     Indication: ANAESTHESIA
     Route: 042
     Dates: end: 20140830
  19. VANIQA [Concomitant]
     Active Substance: EFLORNITHINE HYDROCHLORIDE
  20. FREE STYLE LITE METER [Concomitant]
  21. VALACYCLOVIR [Concomitant]
     Active Substance: VALACYCLOVIR HYDROCHLORIDE
  22. TIZANIDINE. [Concomitant]
     Active Substance: TIZANIDINE

REACTIONS (3)
  - Chapped lips [None]
  - Glossodynia [None]
  - Tongue discolouration [None]

NARRATIVE: CASE EVENT DATE: 20090703
